FAERS Safety Report 8571818-9 (Version None)
Quarter: 2012Q3

REPORT INFORMATION
  Report Type: 
  Country: None (occurrence: None)
  Receive Date: 20120806
  Receipt Date: 20120724
  Transmission Date: 20120928
  Serious: Yes (Other)
  Sender: FDA-Public Use
  Company Number: US-JNJFOC-20120611184

PATIENT
  Sex: Female
  Weight: 54.43 kg

DRUGS (5)
  1. INVEGA [Suspect]
     Indication: BIPOLAR DISORDER
     Route: 048
     Dates: start: 20120515, end: 20120501
  2. INVEGA [Suspect]
     Dosage: HALF TABLET OF 6 MG
     Route: 048
     Dates: start: 20120501
  3. LAMICTAL [Suspect]
     Route: 048
     Dates: start: 20120501, end: 20120601
  4. LAMICTAL [Suspect]
     Indication: BIPOLAR DISORDER
     Route: 048
     Dates: start: 20120601, end: 20120601
  5. INVEGA [Suspect]
     Route: 048
     Dates: start: 20110501, end: 20120501

REACTIONS (17)
  - DRUG PRESCRIBING ERROR [None]
  - DISTURBANCE IN ATTENTION [None]
  - CRYING [None]
  - UNEVALUABLE EVENT [None]
  - FLASHBACK [None]
  - RASH [None]
  - RHINORRHOEA [None]
  - DISCOMFORT [None]
  - THINKING ABNORMAL [None]
  - LIP ULCERATION [None]
  - SUICIDAL IDEATION [None]
  - SPEECH DISORDER [None]
  - ABNORMAL WEIGHT GAIN [None]
  - INSOMNIA [None]
  - TREATMENT NONCOMPLIANCE [None]
  - INAPPROPRIATE AFFECT [None]
  - ACTIVITIES OF DAILY LIVING IMPAIRED [None]
